FAERS Safety Report 13928242 (Version 1)
Quarter: 2017Q3

REPORT INFORMATION
  Report Type: Report from Study
  Country: BR (occurrence: BR)
  Receive Date: 20170901
  Receipt Date: 20170901
  Transmission Date: 20171127
  Serious: Yes (Other)
  Sender: FDA-Public Use
  Company Number: PHHY2017BR127476

PATIENT
  Sex: Male
  Weight: 64 kg

DRUGS (1)
  1. FORASEQ [Suspect]
     Active Substance: BUDESONIDE\FORMOTEROL FUMARATE
     Indication: CHRONIC OBSTRUCTIVE PULMONARY DISEASE
     Dosage: 1 DF (BUDESONIDE 400 UG, FORMOTEROL FUMARATE 12 UG), BID
     Route: 055

REACTIONS (1)
  - Oropharyngeal candidiasis [Recovered/Resolved]
